FAERS Safety Report 8423533-X (Version None)
Quarter: 2012Q2

REPORT INFORMATION
  Report Type: 
  Country: None (occurrence: None)
  Receive Date: 20120608
  Receipt Date: 20120601
  Transmission Date: 20120825
  Serious: Yes (Hospitalization)
  Sender: FDA-Public Use
  Company Number: NL-ROCHE-1074701

PATIENT
  Sex: Female
  Weight: 54 kg

DRUGS (4)
  1. CISPLATIN [Suspect]
     Indication: MALIGNANT LYMPHOID NEOPLASM
     Dosage: LAST DOSE PRIOR TO SAE 07/MAY/2012
     Route: 042
     Dates: start: 20120504
  2. MABTHERA [Suspect]
     Indication: MALIGNANT LYMPHOID NEOPLASM
     Dosage: LAST DOSE PRIOR TO SAE 08/MAY/2012
     Route: 042
     Dates: start: 20120508
  3. CYTARABINE [Suspect]
     Indication: MALIGNANT LYMPHOID NEOPLASM
     Dosage: LAST DOSE PRIOR TO SAE 05/MAY/2012
     Route: 042
     Dates: start: 20120505
  4. CISPLATIN [Suspect]
     Indication: MALIGNANT LYMPHOID NEOPLASM
     Dosage: LAST DOSE PRIOR TO SAE 05/MAY/2012
     Route: 042
     Dates: start: 20120504

REACTIONS (1)
  - CONVULSION [None]
